FAERS Safety Report 15636626 (Version 1)
Quarter: 2018Q4

REPORT INFORMATION
  Report Type: Spontaneous
  Country: US (occurrence: US)
  Receive Date: 20181120
  Receipt Date: 20181120
  Transmission Date: 20190205
  Serious: No
  Sender: FDA-Public Use
  Company Number: US-CIPLA LTD.-2018US15562

PATIENT

DRUGS (19)
  1. METOPROLOL TARTRATE. [Concomitant]
     Active Substance: METOPROLOL TARTRATE
     Indication: HYPERTENSION
     Dosage: 25 MG, QD
     Route: 065
     Dates: start: 201803
  2. GABAPENTIN. [Suspect]
     Active Substance: GABAPENTIN
     Indication: INSOMNIA
     Dosage: 100 MG, QD
     Route: 048
     Dates: start: 20180327
  3. CALCITRIOL. [Concomitant]
     Active Substance: CALCITRIOL
     Indication: THYROID DISORDER
     Dosage: 0.25 MCG, QD
     Route: 065
  4. BABY ASPIRIN [Concomitant]
     Active Substance: ASPIRIN
     Indication: ANTIPLATELET THERAPY
     Dosage: 81 MG, QD
     Route: 065
  5. SUCRALFATE. [Concomitant]
     Active Substance: SUCRALFATE
     Indication: GASTROOESOPHAGEAL REFLUX DISEASE
     Dosage: 1 G, BID
     Route: 065
  6. LEVOTHYROXINE. [Concomitant]
     Active Substance: LEVOTHYROXINE
     Indication: THYROIDECTOMY
     Dosage: 88 MCG, QD
     Route: 065
     Dates: start: 2018
  7. POLY-IRON FORTE [Concomitant]
     Indication: ANAEMIA
     Dosage: 150 MG, QD
     Route: 065
  8. PANTOPRAZOLE [Concomitant]
     Active Substance: PANTOPRAZOLE
     Indication: GASTROOESOPHAGEAL REFLUX DISEASE
     Dosage: 40 MG, QD
     Route: 065
     Dates: end: 2018
  9. LISINOPRIL HCTZ [Concomitant]
     Active Substance: HYDROCHLOROTHIAZIDE\LISINOPRIL
     Indication: HYPERTENSION
     Dosage: 12.5 MG, QD
     Route: 065
     Dates: end: 2018
  10. SIMVASTATIN. [Concomitant]
     Active Substance: SIMVASTATIN
     Indication: BLOOD CHOLESTEROL INCREASED
     Dosage: 20 MG, QD
     Route: 065
  11. ALENDRONATE [Concomitant]
     Active Substance: ALENDRONATE SODIUM
     Indication: BONE DISORDER
     Dosage: 70 MG, ONCE A WEEK
     Route: 065
  12. SUCRALFATE. [Concomitant]
     Active Substance: SUCRALFATE
     Indication: CHOLELITHIASIS
  13. LEVOTHYROXINE. [Concomitant]
     Active Substance: LEVOTHYROXINE
     Dosage: 75 UNK, ONCE A DAY
     Route: 065
     Dates: end: 2018
  14. DOCUSATE SODIUM. [Concomitant]
     Active Substance: DOCUSATE SODIUM
     Indication: CONSTIPATION
     Dosage: 100 MG, QD
     Route: 065
  15. CITALOPRAM [Concomitant]
     Active Substance: CITALOPRAM HYDROBROMIDE
     Indication: HYPERTENSION
     Dosage: 10 MG,  QD
     Route: 065
  16. AMLODIPINE [Concomitant]
     Active Substance: AMLODIPINE BESYLATE
     Indication: HYPERTENSION
     Dosage: 10 MG, QD
     Route: 065
     Dates: end: 2018
  17. MULTIVITAMINS                      /00116001/ [Concomitant]
     Active Substance: VITAMINS
     Indication: SUPPLEMENTATION THERAPY
     Dosage: UNK, QD
     Route: 065
  18. ESOMEPRAZOLE. [Concomitant]
     Active Substance: ESOMEPRAZOLE MAGNESIUM
     Indication: GASTROOESOPHAGEAL REFLUX DISEASE
     Dosage: 40 MG, QD
     Route: 065
     Dates: start: 2018
  19. BISPROLOL COMP [Concomitant]
     Active Substance: BISOPROLOL FUMARATE\HYDROCHLOROTHIAZIDE
     Indication: HYPERTENSION
     Dosage: 5 MG, QD
     Route: 065
     Dates: end: 2018

REACTIONS (3)
  - Off label use [Unknown]
  - Headache [Not Recovered/Not Resolved]
  - Myalgia [Not Recovered/Not Resolved]

NARRATIVE: CASE EVENT DATE: 20180328
